FAERS Safety Report 21370891 (Version 1)
Quarter: 2022Q3

REPORT INFORMATION
  Report Type: Spontaneous
  Country: GB (occurrence: GB)
  Receive Date: 20220923
  Receipt Date: 20220923
  Transmission Date: 20221027
  Serious: Yes (Other)
  Sender: FDA-Public Use
  Company Number: GB-MHRA-MED-202209141617298540-DMSRW

PATIENT
  Age: 56 Year
  Sex: Female
  Weight: 61 kg

DRUGS (8)
  1. HYDROCORTISONE [Suspect]
     Active Substance: HYDROCORTISONE
     Indication: Adverse drug reaction
     Dosage: THERAPY START DATE  : NOT ASKED
     Route: 065
     Dates: end: 20220628
  2. HYDROCORTISONE [Suspect]
     Active Substance: HYDROCORTISONE
     Indication: Eczema
  3. HYDROCORTISONE [Suspect]
     Active Substance: HYDROCORTISONE
     Indication: Dermatitis
  4. BETAMETHASONE [Suspect]
     Active Substance: BETAMETHASONE
     Indication: Adverse drug reaction
     Dosage: THERAPY START DATE  : NOT ASKED
     Route: 065
     Dates: end: 20220628
  5. BETAMETHASONE [Suspect]
     Active Substance: BETAMETHASONE
     Indication: Eczema
  6. BETAMETHASONE [Suspect]
     Active Substance: BETAMETHASONE
     Indication: Dermatitis
  7. BETAMETHASONE VALERATE\FUSIDIC ACID [Suspect]
     Active Substance: BETAMETHASONE VALERATE\FUSIDIC ACID
     Indication: Hand dermatitis
     Dosage: THERAPY START DATE  : NOT ASKED
     Route: 065
     Dates: end: 20220628
  8. CETIRIZINE [Concomitant]
     Active Substance: CETIRIZINE HYDROCHLORIDE
     Indication: Pruritus

REACTIONS (2)
  - Topical steroid withdrawal reaction [Not Recovered/Not Resolved]
  - Medication error [Unknown]

NARRATIVE: CASE EVENT DATE: 20220702
